FAERS Safety Report 23544057 (Version 1)
Quarter: 2024Q1

REPORT INFORMATION
  Report Type: Report from Study
  Country: US (occurrence: US)
  Receive Date: 20240220
  Receipt Date: 20240220
  Transmission Date: 20240410
  Serious: Yes (Other)
  Sender: FDA-Public Use
  Company Number: US-UCBSA-2024007643

PATIENT
  Sex: Male

DRUGS (1)
  1. LACOSAMIDE [Suspect]
     Active Substance: LACOSAMIDE
     Indication: Seizure
     Dosage: 200MG 1 TABLET BID

REACTIONS (2)
  - Deafness [Not Recovered/Not Resolved]
  - Cochlea implant [Not Recovered/Not Resolved]

NARRATIVE: CASE EVENT DATE: 20230101
